FAERS Safety Report 23606256 (Version 1)
Quarter: 2024Q1

REPORT INFORMATION
  Report Type: Spontaneous
  Country: CN (occurrence: CN)
  Receive Date: 20240307
  Receipt Date: 20240307
  Transmission Date: 20240410
  Serious: Yes (Hospitalization)
  Sender: FDA-Public Use
  Company Number: CN-OTSUKA-2024_005512

PATIENT
  Age: 26 Year
  Sex: Male
  Weight: 100.5 kg

DRUGS (3)
  1. ABILIFY [Suspect]
     Active Substance: ARIPIPRAZOLE
     Indication: Schizophrenia
     Dosage: 5 MG, QD
     Route: 048
     Dates: start: 20230501
  2. ABILIFY [Suspect]
     Active Substance: ARIPIPRAZOLE
     Dosage: 2.5 MG, QD
     Route: 048
  3. ABILIFY [Suspect]
     Active Substance: ARIPIPRAZOLE
     Dosage: 5 MG, QD (UPON HOSPITAL ADMISSION)
     Route: 048
     Dates: end: 20240223

REACTIONS (4)
  - Stiff tongue [Recovering/Resolving]
  - Dysarthria [Unknown]
  - Somnolence [Unknown]
  - Intentional product use issue [Unknown]
